FAERS Safety Report 5654230-1 (Version None)
Quarter: 2008Q1

REPORT INFORMATION
  Report Type: 
  Country: None (occurrence: None)
  Receive Date: 20080305
  Receipt Date: 20080221
  Transmission Date: 20080703
  Serious: Yes (Disabling)
  Sender: FDA-Public Use
  Company Number: APP200800118

PATIENT
  Age: 16 Year
  Sex: Female

DRUGS (3)
  1. BUPIVACAINE HCL [Suspect]
     Indication: MUSCULOSKELETAL PAIN
     Dates: start: 20060201
  2. MEPIVACAINE HCL [Suspect]
     Indication: MUSCULOSKELETAL PAIN
     Dates: start: 20060201
  3. I-FLOW PAIN PUMP [Suspect]
     Indication: MUSCULOSKELETAL PAIN
     Dates: start: 20060201

REACTIONS (2)
  - CHONDROLYSIS [None]
  - MUSCULOSKELETAL PAIN [None]
